FAERS Safety Report 9511902 (Version 1)
Quarter: 2013Q3

REPORT INFORMATION
  Report Type: Report from Study
  Country: US (occurrence: US)
  Receive Date: 20130910
  Receipt Date: 20130910
  Transmission Date: 20140515
  Serious: Yes (Other)
  Sender: FDA-Public Use
  Company Number: US-ROCHE-1270146

PATIENT
  Age: 52 Year
  Sex: Male

DRUGS (19)
  1. OMALIZUMAB [Suspect]
     Indication: ASTHMA
     Dosage: 1.8ML TOTAL (0.9 ML EACH SITE)
     Route: 058
     Dates: start: 20111219, end: 201303
  2. OMALIZUMAB [Suspect]
     Route: 058
     Dates: start: 20120106
  3. OMALIZUMAB [Suspect]
     Route: 058
     Dates: start: 20120123
  4. OMALIZUMAB [Suspect]
     Route: 058
     Dates: start: 20120206
  5. OMALIZUMAB [Suspect]
     Route: 058
     Dates: start: 20120229
  6. OMALIZUMAB [Suspect]
     Route: 058
     Dates: start: 20120321
  7. OMALIZUMAB [Suspect]
     Route: 058
     Dates: start: 20120416
  8. OMALIZUMAB [Suspect]
     Route: 058
     Dates: start: 20120514
  9. OMALIZUMAB [Suspect]
     Route: 058
     Dates: start: 20120611
  10. OMALIZUMAB [Suspect]
     Route: 058
     Dates: start: 20120709
  11. OMALIZUMAB [Suspect]
     Route: 058
     Dates: start: 20120806
  12. OMALIZUMAB [Suspect]
     Route: 058
     Dates: start: 20120910
  13. OMALIZUMAB [Suspect]
     Route: 058
     Dates: start: 20121017
  14. OMALIZUMAB [Suspect]
     Route: 058
     Dates: start: 20121119
  15. OMALIZUMAB [Suspect]
     Route: 058
     Dates: start: 20130208
  16. OMALIZUMAB [Suspect]
     Route: 058
     Dates: start: 20130315
  17. AUGMENTIN [Concomitant]
     Dosage: 875 BID X1 WEEK (UNITS UNKNOWN)
     Route: 065
  18. ADVAIR [Concomitant]
     Dosage: 1 PUFF DAILY (CONTINUE ADVAIR DAILY)
     Route: 065
  19. PULMICORT [Concomitant]

REACTIONS (15)
  - Nasal turbinate abnormality [Unknown]
  - Nasal disorder [Unknown]
  - Pulmonary function test abnormal [Unknown]
  - Feeling abnormal [Unknown]
  - Chest discomfort [Unknown]
  - Pharyngeal disorder [Unknown]
  - Nasopharyngitis [Unknown]
  - Dyspnoea exertional [Unknown]
  - Musculoskeletal pain [Unknown]
  - Neck pain [Unknown]
  - Musculoskeletal stiffness [Unknown]
  - Respiratory tract congestion [Unknown]
  - Headache [Unknown]
  - Sleep disorder [Unknown]
  - Sinusitis [Unknown]
